FAERS Safety Report 22284585 (Version 2)
Quarter: 2023Q2

REPORT INFORMATION
  Report Type: Spontaneous
  Country: US (occurrence: US)
  Receive Date: 20230504
  Receipt Date: 20230523
  Transmission Date: 20230721
  Serious: Yes (Death, Life-Threatening, Hospitalization)
  Sender: FDA-Public Use
  Company Number: US-R-PHARM US LLC-2023RPM00003

PATIENT
  Age: 47 Year
  Sex: Female
  Weight: 80.4 kg

DRUGS (15)
  1. IXEMPRA [Suspect]
     Active Substance: IXABEPILONE
     Indication: Breast cancer metastatic
     Dosage: 75 MG, ONCE (40 MG/M?)
     Route: 042
     Dates: start: 20230413, end: 20230413
  2. DENOSUMAB [Suspect]
     Active Substance: DENOSUMAB
     Indication: Bone disorder
     Dosage: UNK
     Dates: start: 2018
  3. DIPHENHYDRAMINE [Suspect]
     Active Substance: DIPHENHYDRAMINE
  4. FAMOTIDINE [Suspect]
     Active Substance: FAMOTIDINE
  5. KEPPRA [Concomitant]
     Active Substance: LEVETIRACETAM
  6. COENZYME Q10 [Concomitant]
     Active Substance: DIETARY SUPPLEMENT\UBIDECARENONE
  7. NYSTATIN [Concomitant]
     Active Substance: NYSTATIN
  8. COMPAZINE [Concomitant]
     Active Substance: PROCHLORPERAZINE MALEATE
     Dosage: UNK, AS NEEDED
  9. ZOFRAN [Concomitant]
     Active Substance: ONDANSETRON HYDROCHLORIDE
     Dosage: UNK, AS NEEDED
  10. TRAMADOL [Concomitant]
     Active Substance: TRAMADOL
  11. VITAMIN C [Concomitant]
     Active Substance: ASCORBIC ACID
  12. VITAMIN D NOS [Concomitant]
     Active Substance: VITAMIN D NOS
  13. ZINC [Concomitant]
     Active Substance: ZINC
  14. FOSAPREPITANT [Concomitant]
     Active Substance: FOSAPREPITANT
  15. PALONOSETRON [Concomitant]
     Active Substance: PALONOSETRON

REACTIONS (1)
  - Toxic epidermal necrolysis [Fatal]

NARRATIVE: CASE EVENT DATE: 20230417
